FAERS Safety Report 11281106 (Version 1)
Quarter: 2015Q3

REPORT INFORMATION
  Report Type: Spontaneous
  Country: FR (occurrence: FR)
  Receive Date: 20150717
  Receipt Date: 20150717
  Transmission Date: 20151125
  Serious: Yes (Death, Other)
  Sender: FDA-Public Use
  Company Number: FR-GILEAD-2015-0163128

PATIENT
  Age: 52 Year
  Sex: Male

DRUGS (5)
  1. PREZISTA [Concomitant]
     Active Substance: DARUNAVIR ETHANOLATE
     Indication: HIV INFECTION
  2. COPEGUS [Suspect]
     Active Substance: RIBAVIRIN
     Indication: PRODUCT USED FOR UNKNOWN INDICATION
     Dosage: UNK
     Route: 048
     Dates: start: 20150318, end: 20150419
  3. NORVIR [Concomitant]
     Active Substance: RITONAVIR
     Indication: HIV INFECTION
  4. HARVONI [Suspect]
     Active Substance: LEDIPASVIR\SOFOSBUVIR
     Indication: PRODUCT USED FOR UNKNOWN INDICATION
     Dosage: 1 DF, QD
     Route: 048
     Dates: start: 20150318, end: 20150419
  5. KIVEXA [Concomitant]
     Active Substance: ABACAVIR SULFATE\LAMIVUDINE
     Indication: HIV INFECTION

REACTIONS (3)
  - Blood bilirubin increased [Fatal]
  - Anaemia [Fatal]
  - Hepatocellular injury [Fatal]

NARRATIVE: CASE EVENT DATE: 20150418
